FAERS Safety Report 16134340 (Version 2)
Quarter: 2019Q2

REPORT INFORMATION
  Report Type: Spontaneous
  Country: GB (occurrence: GB)
  Receive Date: 20190329
  Receipt Date: 20190531
  Transmission Date: 20190711
  Serious: Yes (Life-Threatening, Hospitalization, Other)
  Sender: FDA-Public Use
  Company Number: GB-009507513-1903GBR012376

PATIENT
  Age: 75 Year
  Sex: Male
  Weight: 75 kg

DRUGS (2)
  1. PEMBROLIZUMAB. [Suspect]
     Active Substance: PEMBROLIZUMAB
     Indication: LUNG SQUAMOUS CELL CARCINOMA METASTATIC
     Dosage: 200 MILLIGRAM, Q3W, 2 CYCLE
     Route: 042
     Dates: end: 20190212
  2. PEMBROLIZUMAB. [Suspect]
     Active Substance: PEMBROLIZUMAB
     Indication: NON-SMALL CELL LUNG CANCER
     Dosage: 200 MILLIGRAM, Q3W, 1 CYCLE
     Route: 042
     Dates: start: 20190122

REACTIONS (4)
  - Hepatitis [Recovering/Resolving]
  - Vanishing bile duct syndrome [Recovered/Resolved]
  - Bile duct obstruction [Recovering/Resolving]
  - Biliary sepsis [Recovering/Resolving]

NARRATIVE: CASE EVENT DATE: 2019
